FAERS Safety Report 21967585 (Version 1)
Quarter: 2023Q1

REPORT INFORMATION
  Report Type: Report from Study
  Country: TR (occurrence: TR)
  Receive Date: 20230208
  Receipt Date: 20230208
  Transmission Date: 20230418
  Serious: Yes (Other)
  Sender: FDA-Public Use
  Company Number: TR-BAYER-2023P007294

PATIENT

DRUGS (1)
  1. REGORAFENIB [Suspect]
     Active Substance: REGORAFENIB
     Indication: Gastrointestinal stromal tumour
     Dosage: 160  MG/DAY  (EVERY 4 WEEKS ON A SCHEDULE OF 3 WEEKS ON AND 1 WEEK OFF
     Route: 048

REACTIONS (1)
  - Cerebrovascular accident [None]
